FAERS Safety Report 10723513 (Version 1)
Quarter: 2015Q1

REPORT INFORMATION
  Report Type: Spontaneous
  Country: AU (occurrence: None)
  Receive Date: 20150115
  Receipt Date: 20150115
  Transmission Date: 20150721
  Serious: Yes (Other)
  Sender: FDA-Public Use
  Company Number: UCM201501-000006

PATIENT
  Age: 71 Year
  Sex: Male

DRUGS (13)
  1. FINASTERIDE. [Concomitant]
     Active Substance: FINASTERIDE
  2. WARFARIN [Concomitant]
     Active Substance: WARFARIN
  3. BISOPROLOL FUMARATE. [Suspect]
     Active Substance: BISOPROLOL FUMARATE
     Dosage: UNKNOWN
  4. SOTALOL. [Suspect]
     Active Substance: SOTALOL
     Dosage: UNK
  5. DIGOXIN. [Suspect]
     Active Substance: DIGOXIN
     Dosage: UNKNOWN
  6. ATORVASTATIN [Concomitant]
     Active Substance: ATORVASTATIN
  7. POTASSIUM BICARBONATE / SODIUM ALGINATE [Concomitant]
  8. DRONEDERONE [Suspect]
     Active Substance: DRONEDARONE
  9. CANDESARTAN [Concomitant]
     Active Substance: CANDESARTAN
  10. OMEGA-3 ACIDS [Concomitant]
     Active Substance: OMEGA-3 FATTY ACIDS
  11. METFORMIN [Concomitant]
     Active Substance: METFORMIN HYDROCHLORIDE
  12. SPIRONOLACTONE. [Concomitant]
     Active Substance: SPIRONOLACTONE
  13. DOXAZOSIN [Suspect]
     Active Substance: DOXAZOSIN\DOXAZOSIN MESYLATE

REACTIONS (17)
  - Dizziness [None]
  - Hypotension [None]
  - Hyperkalaemia [None]
  - Oedema [None]
  - Drug interaction [None]
  - Urine analysis abnormal [None]
  - Visual impairment [None]
  - Therapeutic response increased [None]
  - Creatinine renal clearance decreased [None]
  - Diarrhoea [None]
  - Prothrombin level decreased [None]
  - Bradycardia [None]
  - Acute kidney injury [None]
  - Azotaemia [None]
  - Chromatopsia [None]
  - Abdominal pain [None]
  - Oliguria [None]
